FAERS Safety Report 8692393 (Version 2)
Quarter: 2013Q4

REPORT INFORMATION
  Report Type: Spontaneous
  Country: US (occurrence: US)
  Receive Date: 20120730
  Receipt Date: 20131101
  Transmission Date: 20140711
  Serious: No
  Sender: FDA-Public Use
  Company Number: US-009507513-1207USA011161

PATIENT
  Sex: Female

DRUGS (2)
  1. CLARITIN [Suspect]
     Indication: PRURITUS
     Dosage: UNK, UNKNOWN
     Route: 048
     Dates: start: 20120721
  2. CLARITIN [Suspect]
     Indication: MEDICAL OBSERVATION

REACTIONS (1)
  - Drug ineffective for unapproved indication [Unknown]
